APPROVED DRUG PRODUCT: LUMISIGHT
Active Ingredient: PEGULICIANINE ACETATE
Strength: EQ 39MG BASE/VIAL
Dosage Form/Route: POWDER;INTRAVENOUS
Application: N214511 | Product #001
Applicant: LUMICELL INC
Approved: Apr 17, 2024 | RLD: Yes | RS: Yes | Type: RX

PATENTS:
Patent 10285759 | Expires: Dec 8, 2031
Patent 9763577 | Expires: Sep 14, 2034
Patent 9532835 | Expires: Dec 8, 2031
Patent 9155471 | Expires: Oct 12, 2031
Patent 9032965 | Expires: Dec 8, 2031
Patent 11592396 | Expires: Sep 1, 2030

EXCLUSIVITY:
Code: NCE | Date: Apr 17, 2029